FAERS Safety Report 6568464-5 (Version None)
Quarter: 2010Q1

REPORT INFORMATION
  Report Type: 
  Country: None (occurrence: None)
  Receive Date: 20100203
  Receipt Date: 20100128
  Transmission Date: 20100710
  Serious: Yes (Hospitalization)
  Sender: FDA-Public Use
  Company Number: A0842594A

PATIENT
  Age: 32 Year
  Sex: Female

DRUGS (3)
  1. AMOXICILLIN [Suspect]
     Route: 048
     Dates: start: 20080226, end: 20080101
  2. SOLODYN [Suspect]
     Indication: ACNE
     Dosage: 90MG AT NIGHT
     Route: 048
     Dates: start: 20080130, end: 20080101
  3. NO CONCURRENT MEDICATIONS [Concomitant]

REACTIONS (26)
  - ALANINE AMINOTRANSFERASE INCREASED [None]
  - ANAEMIA [None]
  - ASPARTATE AMINOTRANSFERASE INCREASED [None]
  - BLOOD CREATINE PHOSPHOKINASE INCREASED [None]
  - BLOOD CREATININE INCREASED [None]
  - BLOOD UREA INCREASED [None]
  - DEHYDRATION [None]
  - DRUG HYPERSENSITIVITY [None]
  - DYSPNOEA [None]
  - INFECTIOUS MONONUCLEOSIS [None]
  - LUNG INFILTRATION [None]
  - LYMPHADENOPATHY [None]
  - MICROSCOPIC POLYANGIITIS [None]
  - MOUTH ULCERATION [None]
  - MYOGLOBIN BLOOD INCREASED [None]
  - NAUSEA [None]
  - PLEURAL EFFUSION [None]
  - PYREXIA [None]
  - RASH ERYTHEMATOUS [None]
  - RENAL FAILURE ACUTE [None]
  - SKIN LESION [None]
  - SKIN NODULE [None]
  - STEVENS-JOHNSON SYNDROME [None]
  - SYSTEMIC LUPUS ERYTHEMATOSUS [None]
  - ULCER [None]
  - VOMITING [None]
